FAERS Safety Report 5619693-6 (Version None)
Quarter: 2008Q1

REPORT INFORMATION
  Report Type: 
  Country: None (occurrence: None)
  Receive Date: 20080208
  Receipt Date: 20071025
  Transmission Date: 20080703
  Serious: No
  Sender: FDA-Public Use
  Company Number: A0689805A

PATIENT
  Sex: Male

DRUGS (2)
  1. ALTABAX [Suspect]
     Indication: WOUND INFECTION STAPHYLOCOCCAL
     Dosage: 1APP TWICE PER DAY
     Route: 061
     Dates: start: 20071024
  2. AUGMENTIN '250' [Concomitant]

REACTIONS (1)
  - BURNING SENSATION [None]
